FAERS Safety Report 20770462 (Version 1)
Quarter: 2022Q2

REPORT INFORMATION
  Report Type: Report from Study
  Country: CN (occurrence: CN)
  Receive Date: 20220429
  Receipt Date: 20220429
  Transmission Date: 20220721
  Serious: Yes (Death, Other)
  Sender: FDA-Public Use
  Company Number: CN-NOVARTISPH-NVSC2022CN099603

PATIENT
  Sex: Male

DRUGS (1)
  1. MYFORTIC [Suspect]
     Active Substance: MYCOPHENOLATE SODIUM
     Indication: Product used for unknown indication
     Dosage: 1080 MG
     Route: 048
     Dates: start: 2020

REACTIONS (7)
  - COVID-19 [Fatal]
  - Mydriasis [Fatal]
  - Cardio-respiratory arrest [Fatal]
  - Shock [Fatal]
  - Renal failure [Unknown]
  - Ischaemia [Unknown]
  - Catheter site haemorrhage [Unknown]

NARRATIVE: CASE EVENT DATE: 20220420
